FAERS Safety Report 15576775 (Version 1)
Quarter: 2018Q4

REPORT INFORMATION
  Report Type: Spontaneous
  Country: EG (occurrence: EG)
  Receive Date: 20181101
  Receipt Date: 20181101
  Transmission Date: 20190205
  Serious: Yes (Life-Threatening)
  Sender: FDA-Public Use
  Company Number: PHHY2018EG138396

PATIENT
  Age: 67 Year
  Sex: Female

DRUGS (1)
  1. PACLITAXEL. [Suspect]
     Active Substance: PACLITAXEL
     Indication: NON-SMALL CELL LUNG CANCER
     Dosage: 70 MG, QW (FOR 11 WEEKS)
     Route: 065
     Dates: start: 201807, end: 201810

REACTIONS (4)
  - Flushing [Unknown]
  - Tachycardia [Unknown]
  - Dyspnoea [Unknown]
  - Anaphylactic shock [Unknown]
